FAERS Safety Report 5168939-X (Version None)
Quarter: 2006Q4

REPORT INFORMATION
  Report Type: 
  Country: None (occurrence: None)
  Receive Date: 20061211
  Receipt Date: 20061109
  Transmission Date: 20070319
  Serious: Yes (Death, Life-Threatening)
  Sender: FDA-Public Use
  Company Number: JP-BRISTOL-MYERS SQUIBB COMPANY-13573845

PATIENT
  Age: 72 Year
  Sex: Male

DRUGS (6)
  1. BRIPLATIN [Suspect]
     Indication: HEPATIC NEOPLASM MALIGNANT
     Route: 041
     Dates: start: 20061017, end: 20061020
  2. FLUOROURACIL [Suspect]
     Indication: HEPATIC NEOPLASM MALIGNANT
     Route: 042
     Dates: start: 20061017, end: 20061020
  3. GASTER D [Concomitant]
     Route: 048
     Dates: start: 20060108
  4. URSO [Concomitant]
     Route: 048
     Dates: start: 20060412
  5. VASOLAN [Concomitant]
     Route: 048
     Dates: start: 20051004
  6. WARFARIN SODIUM [Concomitant]
     Route: 048
     Dates: start: 20060125

REACTIONS (1)
  - INTERSTITIAL LUNG DISEASE [None]
